FAERS Safety Report 11926211 (Version 2)
Quarter: 2016Q1

REPORT INFORMATION
  Report Type: Spontaneous
  Country: US (occurrence: US)
  Receive Date: 20160119
  Receipt Date: 20160217
  Transmission Date: 20160526
  Serious: Yes (Hospitalization)
  Sender: FDA-Public Use
  Company Number: US-BAUSCH-BL-2016-001280

PATIENT
  Sex: Female

DRUGS (2)
  1. RELISTOR [Suspect]
     Active Substance: METHYLNALTREXONE BROMIDE
     Indication: PRODUCT USED FOR UNKNOWN INDICATION
     Route: 065
     Dates: start: 201511
  2. RELISTOR [Suspect]
     Active Substance: METHYLNALTREXONE BROMIDE
     Route: 065
     Dates: start: 2016

REACTIONS (2)
  - Drug dose omission [Unknown]
  - Constipation [Recovered/Resolved]
